FAERS Safety Report 15538000 (Version 3)
Quarter: 2020Q2

REPORT INFORMATION
  Report Type: Report from Study
  Country: CN (occurrence: CN)
  Receive Date: 20181022
  Receipt Date: 20200511
  Transmission Date: 20200713
  Serious: Yes (Hospitalization, Other)
  Sender: FDA-Public Use
  Company Number: CN-JNJFOC-20181025988

PATIENT
  Sex: Female

DRUGS (2)
  1. RIVAROXABAN [Suspect]
     Active Substance: RIVAROXABAN
     Indication: ATRIAL FIBRILLATION
     Dosage: THREE QUARTERS OF TABLET PER DAY
     Route: 048
     Dates: start: 20180805, end: 2018
  2. RIVAROXABAN [Suspect]
     Active Substance: RIVAROXABAN
     Dosage: 0.5 DF, QD
     Route: 048
     Dates: start: 2018

REACTIONS (3)
  - Limb discomfort [Recovered/Resolved]
  - Atrial fibrillation [Recovered/Resolved]
  - Venous thrombosis limb [Recovered/Resolved]

NARRATIVE: CASE EVENT DATE: 20180826
